FAERS Safety Report 4680041-X (Version None)
Quarter: 2005Q2

REPORT INFORMATION
  Report Type: 
  Country: None (occurrence: None)
  Receive Date: 20050602
  Receipt Date: 20050523
  Transmission Date: 20051028
  Serious: Yes (Hospitalization)
  Sender: FDA-Public Use
  Company Number: PL-GLAXOSMITHKLINE-B0382919A

PATIENT
  Age: 79 Year
  Sex: Female

DRUGS (1)
  1. DIGOXIN [Suspect]
     Indication: DRUG USE FOR UNKNOWN INDICATION
     Route: 065

REACTIONS (15)
  - ABDOMINAL TENDERNESS [None]
  - ANAEMIA [None]
  - ARRHYTHMIA [None]
  - BRADYCARDIA [None]
  - DIABETES MELLITUS [None]
  - DYSPNOEA [None]
  - ELECTROCARDIOGRAM ABNORMAL [None]
  - EYE DISORDER [None]
  - HYPERKALAEMIA [None]
  - HYPOKALAEMIA [None]
  - NERVOUS SYSTEM DISORDER [None]
  - PUPILLARY LIGHT REFLEX TESTS NORMAL [None]
  - RENAL FAILURE [None]
  - SPEECH DISORDER [None]
  - THERAPEUTIC AGENT TOXICITY [None]
